FAERS Safety Report 7961018-5 (Version None)
Quarter: 2011Q4

REPORT INFORMATION
  Report Type: 
  Country: None (occurrence: None)
  Receive Date: 20111207
  Receipt Date: 20111205
  Transmission Date: 20120403
  Serious: Yes (Other)
  Sender: FDA-Public Use
  Company Number: US-PFIZER INC-2011099092

PATIENT
  Age: 79 Year
  Sex: Female

DRUGS (1)
  1. ALTACE [Suspect]
     Dosage: UNK

REACTIONS (1)
  - ASTHMA [None]
